FAERS Safety Report 10029518 (Version 1)
Quarter: 2014Q1

REPORT INFORMATION
  Report Type: Spontaneous
  Country: US (occurrence: None)
  Receive Date: 20140320
  Receipt Date: 20140320
  Transmission Date: 20141002
  Serious: Yes (Disabling, Other)
  Sender: FDA-Public Use
  Company Number: None

PATIENT
  Age: 74 Year
  Sex: Male
  Weight: 133.36 kg

DRUGS (1)
  1. TESTOSTERONE CYPIONATE [Suspect]
     Indication: BLOOD TESTOSTERONE DECREASED
     Dates: start: 20110805, end: 20140310

REACTIONS (1)
  - Injection site pain [None]
